FAERS Safety Report 24840071 (Version 1)
Quarter: 2025Q1

REPORT INFORMATION
  Report Type: Spontaneous
  Country: SE (occurrence: SE)
  Receive Date: 20250114
  Receipt Date: 20250114
  Transmission Date: 20250408
  Serious: Yes (Hospitalization)
  Sender: REGENERON
  Company Number: None

PATIENT
  Age: 76 Year
  Sex: Male

DRUGS (1)
  1. EYLEA HD [Suspect]
     Active Substance: AFLIBERCEPT
     Indication: Macular oedema
     Route: 031
     Dates: start: 20240610, end: 20240610

REACTIONS (5)
  - Visual impairment [Recovered/Resolved]
  - Choroidal haemorrhage [Recovered/Resolved]
  - Bacterial endophthalmitis [Recovered/Resolved]
  - Retinal tear [Recovered/Resolved]
  - Eye pain [Recovered/Resolved]

NARRATIVE: CASE EVENT DATE: 20240618
